FAERS Safety Report 21316075 (Version 3)
Quarter: 2023Q1

REPORT INFORMATION
  Report Type: Spontaneous
  Country: US (occurrence: US)
  Receive Date: 20220910
  Receipt Date: 20230113
  Transmission Date: 20230417
  Serious: Yes (Other)
  Sender: FDA-Public Use
  Company Number: US-AMGEN-USASP2022153406

PATIENT
  Age: 79 Year
  Sex: Female
  Weight: 77.098 kg

DRUGS (1)
  1. REPATHA [Suspect]
     Active Substance: EVOLOCUMAB
     Indication: Blood cholesterol increased
     Dosage: 140 MILLIGRAM PER ML, Q2WK
     Route: 065

REACTIONS (5)
  - Brain neoplasm malignant [Unknown]
  - Device difficult to use [Unknown]
  - Product dose omission issue [Unknown]
  - Device use error [Unknown]
  - Drug dose omission by device [Unknown]

NARRATIVE: CASE EVENT DATE: 20220409
